FAERS Safety Report 10099551 (Version 1)
Quarter: 2014Q2

REPORT INFORMATION
  Report Type: Spontaneous
  Country: GB (occurrence: GB)
  Receive Date: 20140423
  Receipt Date: 20140423
  Transmission Date: 20141212
  Serious: Yes (Other)
  Sender: FDA-Public Use
  Company Number: PHHY2014GB047177

PATIENT
  Age: 28 Year
  Sex: Female

DRUGS (16)
  1. AZITHROMYCIN [Suspect]
     Indication: TUBERCULOSIS
  2. LINEZOLID [Suspect]
     Indication: TUBERCULOSIS
  3. CYCLOSERINE [Suspect]
     Indication: TUBERCULOSIS
  4. PROTHIONAMIDE [Suspect]
     Indication: TUBERCULOSIS
  5. PYRAZINAMIDE [Concomitant]
     Indication: TUBERCULOSIS
     Dates: start: 201105
  6. RIFAMPICIN [Concomitant]
     Indication: TUBERCULOSIS
     Dates: start: 201105
  7. ISONIAZID [Concomitant]
     Indication: TUBERCULOSIS
     Dates: start: 201105
  8. ETHAMBUTOL [Concomitant]
     Indication: TUBERCULOSIS
     Dates: start: 201105
  9. STREPTOMYCIN [Concomitant]
  10. CAPREOMYCIN [Concomitant]
  11. KANAMYCIN [Concomitant]
  12. CORTICOSTEROIDS [Concomitant]
  13. PARA-AMINOSALICYLIC ACID [Concomitant]
     Indication: TUBERCULOSIS
  14. MEROPENEM [Concomitant]
     Indication: TUBERCULOSIS
  15. CO-AMOXICLAV [Concomitant]
     Indication: TUBERCULOSIS
  16. BEDAQUILINE [Concomitant]
     Dates: start: 201108

REACTIONS (3)
  - Neuropathy peripheral [Unknown]
  - Pain [Unknown]
  - Nausea [Unknown]
